FAERS Safety Report 16565934 (Version 4)
Quarter: 2019Q3

REPORT INFORMATION
  Report Type: Spontaneous
  Country: US (occurrence: US)
  Receive Date: 20190712
  Receipt Date: 20190917
  Transmission Date: 20191004
  Serious: Yes (Other)
  Sender: FDA-Public Use
  Company Number: US-PFIZER INC-2019297240

PATIENT
  Age: 66 Year
  Sex: Female
  Weight: 66.21 kg

DRUGS (1)
  1. IBRANCE [Suspect]
     Active Substance: PALBOCICLIB
     Indication: BREAST CANCER METASTATIC
     Dosage: 125 MG, CYCLIC (1-21 OF 28 DAY CYCLE)
     Route: 048
     Dates: start: 20190617, end: 201909

REACTIONS (3)
  - Neoplasm progression [Unknown]
  - White blood cell count decreased [Unknown]
  - Neutropenia [Recovered/Resolved]

NARRATIVE: CASE EVENT DATE: 20190712
